FAERS Safety Report 14970067 (Version 1)
Quarter: 2018Q2

REPORT INFORMATION
  Report Type: Spontaneous
  Country: US (occurrence: US)
  Receive Date: 20180530
  Receipt Date: 20180530
  Transmission Date: 20180711
  Serious: No
  Sender: FDA-Public Use
  Company Number: US-KADMON PHARMACEUTICALS, LLC-KAD201708-000906

PATIENT
  Age: 68 Year
  Sex: Female

DRUGS (4)
  1. ALPRAZOLAM. [Concomitant]
     Active Substance: ALPRAZOLAM
  2. RIBASPHERE [Suspect]
     Active Substance: RIBAVIRIN
     Dates: start: 20110310
  3. ZOLPIDEM TARTRATE. [Concomitant]
     Active Substance: ZOLPIDEM TARTRATE
  4. PEG-INTERFERON ALFA-2A [Suspect]
     Active Substance: PEGINTERFERON ALFA-2A
     Route: 058
     Dates: start: 20110310

REACTIONS (14)
  - Dyspnoea exertional [Unknown]
  - Fatigue [Unknown]
  - Anxiety [Unknown]
  - Chills [Unknown]
  - Diarrhoea [Unknown]
  - Blood glucose increased [Unknown]
  - Urinary incontinence [Unknown]
  - White blood cell count decreased [Unknown]
  - Influenza like illness [Unknown]
  - Chest pain [Unknown]
  - Glycosylated haemoglobin increased [Unknown]
  - Pollakiuria [Unknown]
  - Platelet count decreased [Unknown]
  - Injection site erythema [Unknown]
